FAERS Safety Report 19378312 (Version 1)
Quarter: 2021Q2

REPORT INFORMATION
  Report Type: Spontaneous
  Country: FR (occurrence: FR)
  Receive Date: 20210605
  Receipt Date: 20210605
  Transmission Date: 20210717
  Serious: Yes (Other)
  Sender: FDA-Public Use
  Company Number: FR-TEVA-2021-FR-1918786

PATIENT
  Sex: Female

DRUGS (1)
  1. COPAXONE [Suspect]
     Active Substance: GLATIRAMER ACETATE
     Dosage: FORM STRENGTH: UNKNOWN
     Route: 065

REACTIONS (6)
  - Retching [Recovered/Resolved]
  - Hypersensitivity [Unknown]
  - Eye swelling [Recovered/Resolved]
  - Palatal swelling [Unknown]
  - Heart rate increased [Recovered/Resolved]
  - Erythema [Recovered/Resolved]
